FAERS Safety Report 12621925 (Version 2)
Quarter: 2016Q4

REPORT INFORMATION
  Report Type: Spontaneous
  Country: BR (occurrence: BR)
  Receive Date: 20160804
  Receipt Date: 20161208
  Transmission Date: 20170207
  Serious: Yes (Other)
  Sender: FDA-Public Use
  Company Number: BR-PFIZER INC-2016370162

PATIENT
  Age: 41 Year
  Sex: Male
  Weight: 59 kg

DRUGS (1)
  1. TALIGLUCERASE ALFA [Suspect]
     Active Substance: TALIGLUCERASE ALFA
     Indication: GAUCHER^S DISEASE
     Dosage: ^15 AMPOULES^ EVERY 15 DAYS

REACTIONS (3)
  - Road traffic accident [Unknown]
  - Fracture [Unknown]
  - Fear of closed spaces [Unknown]

NARRATIVE: CASE EVENT DATE: 20140124
